FAERS Safety Report 14292067 (Version 1)
Quarter: 2017Q4

REPORT INFORMATION
  Report Type: Spontaneous
  Country: US (occurrence: US)
  Receive Date: 20171215
  Receipt Date: 20171215
  Transmission Date: 20180321
  Serious: No
  Sender: FDA-Public Use
  Company Number: US-NOVOPROD-519071

PATIENT
  Age: 58 Year
  Sex: Female
  Weight: 80.73 kg

DRUGS (2)
  1. LEVEMIR [Suspect]
     Active Substance: INSULIN DETEMIR
     Indication: TYPE 2 DIABETES MELLITUS
     Dosage: 20 U, QD
     Route: 058
     Dates: start: 2016, end: 201610
  2. LEVEMIR [Suspect]
     Active Substance: INSULIN DETEMIR
     Dosage: 44 U, QD
     Route: 058
     Dates: start: 201610, end: 20161102

REACTIONS (6)
  - Headache [Recovered/Resolved]
  - Pain in extremity [Recovered/Resolved]
  - Pharyngeal oedema [Recovering/Resolving]
  - Respiratory tract congestion [Recovered/Resolved]
  - Ear pain [Recovered/Resolved]
  - Pain [Recovered/Resolved]

NARRATIVE: CASE EVENT DATE: 2016
